FAERS Safety Report 9133954 (Version 2)
Quarter: 2013Q2

REPORT INFORMATION
  Report Type: Spontaneous
  Country: US (occurrence: US)
  Receive Date: 20130304
  Receipt Date: 20130408
  Transmission Date: 20140414
  Serious: Yes (Hospitalization, Other)
  Sender: FDA-Public Use
  Company Number: US-AMGEN-USASP2013013301

PATIENT
  Age: 77 Year
  Sex: Male
  Weight: 65.31 kg

DRUGS (15)
  1. ENBREL [Suspect]
     Indication: PRODUCT USED FOR UNKNOWN INDICATION
     Dosage: 25 MG/0.5 ML, EVERY 7 DAYS
     Route: 058
  2. FLUOXETINE [Concomitant]
     Dosage: 10 MG, UNK
  3. WARFARIN [Concomitant]
     Dosage: 1 MG, UNK
  4. MULTICAPS [Concomitant]
     Dosage: UNK
  5. OMEPRAZOLE [Concomitant]
     Dosage: 20 MG, UNK
  6. VITAMIN D3 [Concomitant]
     Dosage: 3000 UNIT, UNK
  7. LEVOTHROID [Concomitant]
     Dosage: 100 MCG, UNK
  8. CALCIUM [Concomitant]
     Dosage: 500 UNK, UNK
  9. GLIPIZIDE [Concomitant]
     Dosage: 5 MG, UNK
  10. VITAMIN B COMPLEX [Concomitant]
     Dosage: 100 UNK, UNK
  11. DOCUSATE SODIUM [Concomitant]
     Dosage: 100 MG, UNK
  12. CLONAZEPAM [Concomitant]
     Dosage: 1 MG, UNK
  13. RISPERIDONE [Concomitant]
     Dosage: 0.5 MG, UNK
  14. MORPHINE SULFATE [Concomitant]
     Dosage: 10 MG, UNK
  15. PREDNISONE [Concomitant]
     Dosage: 1 MG, UNK

REACTIONS (2)
  - Pneumonia [Unknown]
  - Vertebroplasty [Unknown]
